FAERS Safety Report 24864528 (Version 2)
Quarter: 2025Q2

REPORT INFORMATION
  Report Type: Spontaneous
  Country: US (occurrence: US)
  Receive Date: 20250120
  Receipt Date: 20250414
  Transmission Date: 20250716
  Serious: No
  Sender: SANOFI AVENTIS
  Company Number: US-SANOFI-02374838

PATIENT
  Age: 67 Year
  Sex: Female
  Weight: 75.45 kg

DRUGS (22)
  1. DUPIXENT [Suspect]
     Active Substance: DUPILUMAB
     Indication: Chronic obstructive pulmonary disease
     Dosage: 300 MG, QOW
     Route: 065
  2. FLUTICASONE FUROATE\VILANTEROL TRIFENATATE [Concomitant]
     Active Substance: FLUTICASONE FUROATE\VILANTEROL TRIFENATATE
  3. TYLENOL [Concomitant]
     Active Substance: ACETAMINOPHEN
  4. CAPLYTA [Concomitant]
     Active Substance: LUMATEPERONE
  5. ONDANSETRON HYDROCHLORIDE [Concomitant]
     Active Substance: ONDANSETRON HYDROCHLORIDE
  6. ALBUTEROL SULFATE [Concomitant]
     Active Substance: ALBUTEROL SULFATE
  7. METHOCARBAMOL [Concomitant]
     Active Substance: METHOCARBAMOL
  8. GABAPENTIN [Concomitant]
     Active Substance: GABAPENTIN
  9. PRASTERONE [Concomitant]
     Active Substance: PRASTERONE
  10. BUDESONIDE [Concomitant]
     Active Substance: BUDESONIDE
  11. NYSTATIN [Concomitant]
     Active Substance: NYSTATIN
  12. LORATADINE [Concomitant]
     Active Substance: LORATADINE
  13. CEFPODOXIME PROXETIL [Concomitant]
     Active Substance: CEFPODOXIME PROXETIL
  14. DULOXETINE HYDROCHLORIDE [Concomitant]
     Active Substance: DULOXETINE HYDROCHLORIDE
  15. LEVETIRACETAM [Concomitant]
     Active Substance: LEVETIRACETAM
  16. ATORVASTATIN CALCIUM [Concomitant]
     Active Substance: ATORVASTATIN CALCIUM
  17. MELATONIN [Concomitant]
     Active Substance: MELATONIN
  18. TRAZODONE HCL [Concomitant]
     Active Substance: TRAZODONE HYDROCHLORIDE
  19. VITAMINS [Concomitant]
     Active Substance: VITAMINS
  20. IPRATROPIUM BROMIDE [Concomitant]
     Active Substance: IPRATROPIUM BROMIDE
  21. PANTOPRAZOLE SODIUM [Concomitant]
     Active Substance: PANTOPRAZOLE SODIUM
  22. PREDNISONE [Concomitant]
     Active Substance: PREDNISONE

REACTIONS (3)
  - Illness [Unknown]
  - Accidental exposure to product [Unknown]
  - Exposure via skin contact [Unknown]

NARRATIVE: CASE EVENT DATE: 20250115
